FAERS Safety Report 4672482-1 (Version None)
Quarter: 2005Q2

REPORT INFORMATION
  Report Type: 
  Country: None (occurrence: None)
  Receive Date: 20050524
  Receipt Date: 20050516
  Transmission Date: 20051028
  Serious: Yes (Hospitalization)
  Sender: FDA-Public Use
  Company Number: MX-BOEHRINGER INGELHEIM PHARMACEUTICALS, INC.-2005-BP-08093MX

PATIENT
  Age: 72 Year
  Sex: Male

DRUGS (5)
  1. SECOTEX CAPSULES 0.4MG [Suspect]
     Indication: BENIGN PROSTATIC HYPERPLASIA
     Route: 048
     Dates: start: 20041001
  2. PROSCAR [Suspect]
     Indication: BENIGN PROSTATIC HYPERPLASIA
     Route: 048
     Dates: start: 20041001
  3. FUROSEMIDE [Concomitant]
     Indication: BLOOD CREATININE INCREASED
     Route: 048
  4. MICRORGAN (CIPROFOLXACIN) [Concomitant]
     Indication: URINARY TRACT INFECTION
     Route: 048
  5. BUSCAPINA [Concomitant]
     Indication: URETERAL SPASM
     Route: 048

REACTIONS (1)
  - DRUG INEFFECTIVE [None]
